FAERS Safety Report 22301897 (Version 2)
Quarter: 2023Q2

REPORT INFORMATION
  Report Type: Other
  Country: US (occurrence: None)
  Receive Date: 20230510
  Receipt Date: 20230518
  Transmission Date: 20230722
  Serious: Yes (Other)
  Sender: FDA-Public Use
  Company Number: US-ROCHE-3285230

PATIENT
  Age: 65 Year
  Sex: Female
  Weight: 61.744 kg

DRUGS (8)
  1. HERCEPTIN [Suspect]
     Active Substance: TRASTUZUMAB
     Indication: Ovarian cancer
     Route: 042
     Dates: start: 202203
  2. HERCEPTIN [Suspect]
     Active Substance: TRASTUZUMAB
     Indication: Ovarian germ cell cancer
  3. PERJETA [Suspect]
     Active Substance: PERTUZUMAB
     Indication: Ovarian cancer
     Route: 042
     Dates: start: 202203
  4. PERJETA [Suspect]
     Active Substance: PERTUZUMAB
     Indication: Ovarian germ cell cancer
  5. TAXOL [Suspect]
     Active Substance: PACLITAXEL
     Indication: Ovarian cancer
     Route: 042
     Dates: start: 2019, end: 202210
  6. CARBOPLATIN [Suspect]
     Active Substance: CARBOPLATIN
     Indication: Product used for unknown indication
     Route: 065
  7. ROCEPHIN [Concomitant]
     Active Substance: CEFTRIAXONE SODIUM
  8. DOXYCYCLINE HYDROCHLORIDE [Concomitant]
     Active Substance: DOXYCYCLINE HYDROCHLORIDE

REACTIONS (10)
  - Brain neoplasm malignant [Unknown]
  - Neuropathy peripheral [Not Recovered/Not Resolved]
  - Lymphoedema [Not Recovered/Not Resolved]
  - Wound [Unknown]
  - Blister [Recovered/Resolved]
  - Gastroenteritis viral [Recovered/Resolved]
  - Illness [Unknown]
  - Vomiting [Unknown]
  - Off label use [Unknown]
  - Off label use [Unknown]

NARRATIVE: CASE EVENT DATE: 20220101
